FAERS Safety Report 4741637-X (Version None)
Quarter: 2005Q3

REPORT INFORMATION
  Report Type: 
  Country: None (occurrence: None)
  Receive Date: 20050801
  Receipt Date: 20050626
  Transmission Date: 20060218
  Serious: No
  Sender: FDA-Public Use
  Company Number: 2005PV000144

PATIENT
  Age: 60 Year
  Sex: Female
  Weight: 68.4932 kg

DRUGS (5)
  1. BYETTA [Suspect]
     Indication: DIABETES MELLITUS NON-INSULIN-DEPENDENT
     Dosage: 5 UG; BID; SC
     Route: 058
     Dates: start: 20050623
  2. AVANDIA [Concomitant]
  3. GLUCOTROL [Concomitant]
  4. LIPITOR [Concomitant]
  5. TAMOXIFEN CITRATE [Concomitant]

REACTIONS (2)
  - PRE-EXISTING CONDITION IMPROVED [None]
  - SOMNOLENCE [None]
